FAERS Safety Report 9735660 (Version 1)
Quarter: 2013Q4

REPORT INFORMATION
  Report Type: Spontaneous
  Country: US (occurrence: None)
  Receive Date: 20131204
  Receipt Date: 20131204
  Transmission Date: 20140711
  Serious: Yes (Death)
  Sender: FDA-Public Use
  Company Number: US-ALKEM-000381

PATIENT
  Age: 62 Year
  Sex: Female

DRUGS (2)
  1. AMLODIPINE (AMLODIPINE) [Suspect]
  2. VALPROIC ACID (VALPROIC ACID) [Suspect]

REACTIONS (3)
  - Completed suicide [None]
  - Intentional drug misuse [None]
  - Exposure via ingestion [None]
